FAERS Safety Report 6389901-5 (Version None)
Quarter: 2009Q4

REPORT INFORMATION
  Report Type: 
  Country: None (occurrence: None)
  Receive Date: 20091006
  Receipt Date: 20090312
  Transmission Date: 20100525
  Serious: No
  Sender: FDA-Public Use
  Company Number: US-BRISTOL-MYERS SQUIBB COMPANY-14542187

PATIENT
  Age: 7 Decade
  Sex: Female

DRUGS (3)
  1. AVAPRO [Suspect]
     Dosage: FORMULATION TABLET
  2. ASPIRIN [Concomitant]
  3. CALCIUM [Concomitant]

REACTIONS (2)
  - BLOOD PRESSURE INCREASED [None]
  - HEADACHE [None]
